FAERS Safety Report 7913122 (Version 2)
Quarter: 2014Q1

REPORT INFORMATION
  Report Type: Report from Study
  Country: PR (occurrence: US)
  Receive Date: 20110425
  Receipt Date: 20140327
  Transmission Date: 20141002
  Serious: Yes (Death, Hospitalization, Other)
  Sender: FDA-Public Use
  Company Number: PR-ALEXION-A201100499

PATIENT
  Age: 77 Year
  Sex: Male

DRUGS (4)
  1. SOLIRIS [Suspect]
     Indication: PAROXYSMAL NOCTURNAL HAEMOGLOBINURIA
     Dosage: 900 MG, Q15DAYS
     Route: 042
     Dates: start: 20091127, end: 201101
  2. SOLIRIS [Suspect]
     Dosage: 900 MG, Q12DAYS
     Route: 042
     Dates: start: 20110204, end: 20110321
  3. PROCRIT [Concomitant]
     Dosage: 900 MG, Q15DAYS
     Dates: start: 20091127, end: 201101
  4. PROCRIT [Concomitant]
     Dosage: 900 MG, Q12DAYS
     Dates: start: 20110204, end: 20110321

REACTIONS (6)
  - Septic shock [Fatal]
  - Cardiac disorder [Fatal]
  - Intestinal obstruction [Unknown]
  - Ascites [Unknown]
  - Vomiting [Unknown]
  - Organ failure [Unknown]
